FAERS Safety Report 11630089 (Version 1)
Quarter: 2015Q4

REPORT INFORMATION
  Report Type: Spontaneous
  Country: US (occurrence: US)
  Receive Date: 20151014
  Receipt Date: 20151014
  Transmission Date: 20160304
  Serious: Yes (Other)
  Sender: FDA-Public Use
  Company Number: US-BAUSCH-BL-2015-022666

PATIENT
  Age: 44 Year
  Sex: Female
  Weight: 103.51 kg

DRUGS (3)
  1. PROPARACAINE HYDROCHLORIDE OPHTHALMIC SOLUTION USP 0.5% [Suspect]
     Active Substance: PROPARACAINE HYDROCHLORIDE
     Indication: VISUAL FIELD TESTS
     Dosage: IN EACH EYE (ONCE ONLY)
     Route: 047
     Dates: start: 20150925, end: 20150925
  2. LISINOPRIL. [Concomitant]
     Active Substance: LISINOPRIL
     Indication: PRODUCT USED FOR UNKNOWN INDICATION
  3. TROPICAMIDE OPHTHALMIC SOLUTION USP 0.5% [Suspect]
     Active Substance: TROPICAMIDE
     Indication: VISUAL FIELD TESTS
     Dosage: IN EACH EYE (ONCE ONLY)
     Route: 047
     Dates: start: 20150925, end: 20150925

REACTIONS (3)
  - Diarrhoea [Recovering/Resolving]
  - Anaphylactic reaction [Recovering/Resolving]
  - Hypersensitivity [Recovering/Resolving]

NARRATIVE: CASE EVENT DATE: 20150925
